FAERS Safety Report 7125069-5 (Version None)
Quarter: 2010Q4

REPORT INFORMATION
  Report Type: 
  Country: None (occurrence: None)
  Receive Date: 20101129
  Receipt Date: 20101015
  Transmission Date: 20110411
  Serious: Yes (Other)
  Sender: FDA-Public Use
  Company Number: US-AMGEN-USASP2010000448

PATIENT

DRUGS (2)
  1. ENBREL [Suspect]
     Indication: RHEUMATOID ARTHRITIS
     Dates: start: 20090101
  2. ARAVA [Concomitant]
     Dosage: 1 MG, QD
     Dates: start: 20090101

REACTIONS (8)
  - BRONCHITIS [None]
  - HYPERTENSION [None]
  - INFECTION [None]
  - OEDEMA [None]
  - PYREXIA [None]
  - TOOTH INFECTION [None]
  - URINARY TRACT INFECTION [None]
  - WHITE BLOOD CELL COUNT INCREASED [None]
